FAERS Safety Report 10100082 (Version 3)
Quarter: 2015Q3

REPORT INFORMATION
  Report Type: Spontaneous
  Country: US (occurrence: US)
  Receive Date: 20140423
  Receipt Date: 20150814
  Transmission Date: 20151125
  Serious: No
  Sender: FDA-Public Use
  Company Number: US-GILEAD-2013-0074163

PATIENT
  Age: 63 Year
  Sex: Male
  Weight: 96.15 kg

DRUGS (2)
  1. AUGMENTIN [Concomitant]
     Active Substance: AMOXICILLIN\CLAVULANATE POTASSIUM
  2. LETAIRIS [Suspect]
     Active Substance: AMBRISENTAN
     Indication: PULMONARY ARTERIAL HYPERTENSION
     Dosage: 5 MG, QD
     Dates: start: 20130403, end: 20130424

REACTIONS (2)
  - Swelling [Unknown]
  - Haemoptysis [Unknown]

NARRATIVE: CASE EVENT DATE: 20130415
